FAERS Safety Report 6607060-8 (Version None)
Quarter: 2010Q1

REPORT INFORMATION
  Report Type: 
  Country: None (occurrence: None)
  Receive Date: 20100219
  Receipt Date: 20100211
  Transmission Date: 20100710
  Serious: Yes (Life-Threatening, Hospitalization)
  Sender: FDA-Public Use
  Company Number: 231446J10USA

PATIENT
  Age: 62 Year
  Sex: Female

DRUGS (3)
  1. REBIF [Suspect]
     Indication: MULTIPLE SCLEROSIS
     Dosage: 44 MCG, 3 IN 1 WEEKS, SUBCUTANEOUS
     Route: 058
     Dates: start: 20040101
  2. INSULIN (INSULIN) [Concomitant]
  3. LISINOPRIL [Concomitant]

REACTIONS (8)
  - ACTIVITIES OF DAILY LIVING IMPAIRED [None]
  - APPARENT DEATH [None]
  - DYSPNOEA [None]
  - HYPERTROPHIC CARDIOMYOPATHY [None]
  - LUNG DISORDER [None]
  - PERICARDIAL EFFUSION [None]
  - PULMONARY OEDEMA [None]
  - SPEECH DISORDER [None]
